FAERS Safety Report 24666735 (Version 2)
Quarter: 2024Q4

REPORT INFORMATION
  Report Type: Spontaneous
  Country: US (occurrence: US)
  Receive Date: 20241126
  Receipt Date: 20241202
  Transmission Date: 20250115
  Serious: No
  Sender: SANOFI AVENTIS
  Company Number: US-SA-2024SA341979

PATIENT
  Age: 50 Year
  Sex: Female

DRUGS (1)
  1. DUPIXENT [Suspect]
     Active Substance: DUPILUMAB
     Indication: Asthma
     Dosage: 300 MG, QOW
     Route: 058

REACTIONS (5)
  - Loss of personal independence in daily activities [Unknown]
  - Oral pain [Unknown]
  - Pain [Unknown]
  - Dysphagia [Unknown]
  - Oral herpes [Unknown]

NARRATIVE: CASE EVENT DATE: 20241114
